FAERS Safety Report 13850037 (Version 1)
Quarter: 2017Q3

REPORT INFORMATION
  Report Type: Spontaneous
  Country: US (occurrence: US)
  Receive Date: 20170809
  Receipt Date: 20170809
  Transmission Date: 20171127
  Serious: No
  Sender: FDA-Public Use
  Company Number: US-VERTEX PHARMACEUTICALS-2017-004222

PATIENT
  Age: 34 Year
  Sex: Female

DRUGS (19)
  1. CREON [Concomitant]
     Active Substance: PANCRELIPASE AMYLASE\PANCRELIPASE LIPASE\PANCRELIPASE PROTEASE
  2. ENALAPRIL [Concomitant]
     Active Substance: ENALAPRIL
  3. LANTUS [Concomitant]
     Active Substance: INSULIN GLARGINE
  4. AZITHROMYCIN ANHYDROUS. [Concomitant]
     Active Substance: AZITHROMYCIN ANHYDROUS
  5. HUMALOG [Concomitant]
     Active Substance: INSULIN LISPRO
  6. MEPHYTON [Concomitant]
     Active Substance: PHYTONADIONE
  7. KEPPRA [Concomitant]
     Active Substance: LEVETIRACETAM
  8. VITAMIN D [Concomitant]
     Active Substance: CHOLECALCIFEROL
  9. COLISTIMETHATE [Concomitant]
     Active Substance: COLISTIMETHATE SODIUM
  10. PULMOZYME [Concomitant]
     Active Substance: DORNASE ALFA
  11. URSODIOL. [Concomitant]
     Active Substance: URSODIOL
  12. FLONASE [Concomitant]
     Active Substance: FLUTICASONE PROPIONATE
  13. COLISTIN [Concomitant]
     Active Substance: COLISTIN
  14. ADVAIR HFA [Concomitant]
     Active Substance: FLUTICASONE PROPIONATE\SALMETEROL XINAFOATE
  15. SINGULAIR [Concomitant]
     Active Substance: MONTELUKAST SODIUM
  16. ORKAMBI [Suspect]
     Active Substance: IVACAFTOR\LUMACAFTOR
     Indication: CYSTIC FIBROSIS
     Dosage: UNK
     Route: 048
     Dates: start: 201704
  17. XOLAIR [Concomitant]
     Active Substance: OMALIZUMAB
  18. QVAR [Concomitant]
     Active Substance: BECLOMETHASONE DIPROPIONATE
     Dosage: UNK
  19. CAYSTON [Concomitant]
     Active Substance: AZTREONAM

REACTIONS (1)
  - Cough [Not Recovered/Not Resolved]

NARRATIVE: CASE EVENT DATE: 20170717
